FAERS Safety Report 12416243 (Version 1)
Quarter: 2016Q2

REPORT INFORMATION
  Report Type: Spontaneous
  Country: US (occurrence: US)
  Receive Date: 20160530
  Receipt Date: 20160530
  Transmission Date: 20160815
  Serious: No
  Sender: FDA-Public Use
  Company Number: US-JNJFOC-20160501968

PATIENT
  Sex: Female
  Weight: 163.3 kg

DRUGS (11)
  1. AMLODIPINE [Concomitant]
     Active Substance: AMLODIPINE BESYLATE
     Route: 065
  2. POTASSIUM [Concomitant]
     Active Substance: POTASSIUM
     Route: 065
  3. LORATADINE AND PSEUDOEPHEDRINE SULFATE [Concomitant]
     Active Substance: LORATADINE\PSEUDOEPHEDRINE SULFATE
     Route: 065
  4. ULTRAM [Suspect]
     Active Substance: TRAMADOL HYDROCHLORIDE
     Indication: AUTOIMMUNE DISORDER
     Dosage: EVERY MORNING
     Route: 048
     Dates: start: 2013
  5. ULTRAM [Suspect]
     Active Substance: TRAMADOL HYDROCHLORIDE
     Indication: PAIN
     Dosage: EVERY MORNING
     Route: 048
     Dates: start: 2013
  6. ATENOLOL. [Concomitant]
     Active Substance: ATENOLOL
     Route: 065
  7. PANTOPRAZOLE [Concomitant]
     Active Substance: PANTOPRAZOLE SODIUM
     Route: 065
  8. ULTRAM [Suspect]
     Active Substance: TRAMADOL HYDROCHLORIDE
     Indication: AUTOIMMUNE DISORDER
     Dosage: EVERY NIGHT
     Route: 048
     Dates: start: 2013
  9. ULTRAM [Suspect]
     Active Substance: TRAMADOL HYDROCHLORIDE
     Indication: PAIN
     Dosage: EVERY NIGHT
     Route: 048
     Dates: start: 2013
  10. SIMVASTATIN. [Concomitant]
     Active Substance: SIMVASTATIN
     Route: 065
  11. DROSPIRENONE W/ETHINYLESTRADIOL [Concomitant]
     Active Substance: DROSPIRENONE\ETHINYL ESTRADIOL
     Route: 065

REACTIONS (2)
  - Drug dose omission [Unknown]
  - Pain [Not Recovered/Not Resolved]
